FAERS Safety Report 4603545-4 (Version None)
Quarter: 2005Q2

REPORT INFORMATION
  Report Type: 
  Country: None (occurrence: None)
  Receive Date: 20050224
  Receipt Date: 20041202
  Transmission Date: 20051028
  Serious: Yes (Other)
  Sender: FDA-Public Use
  Company Number: 041206-0000497

PATIENT
  Age: 22 Year
  Sex: Male

DRUGS (1)
  1. METHAMPHETAMINE HCL [Suspect]
     Dosage: 40 MG; IV
     Route: 042

REACTIONS (3)
  - HALLUCINATION, AUDITORY [None]
  - LIBIDO INCREASED [None]
  - PSYCHOTIC DISORDER [None]
